FAERS Safety Report 20375713 (Version 1)
Quarter: 2022Q1

REPORT INFORMATION
  Report Type: Spontaneous
  Country: CN (occurrence: CN)
  Receive Date: 20220125
  Receipt Date: 20220125
  Transmission Date: 20220423
  Serious: Yes (Other)
  Sender: FDA-Public Use
  Company Number: CN-BoehringerIngelheim-2022-BI-108803

PATIENT
  Age: 82 Year
  Sex: Male
  Weight: 50 kg

DRUGS (4)
  1. ALTEPLASE [Suspect]
     Active Substance: ALTEPLASE
     Indication: Thrombosis prophylaxis
     Route: 042
     Dates: start: 20220111, end: 20220111
  2. ALTEPLASE [Suspect]
     Active Substance: ALTEPLASE
     Indication: Cerebral infarction
     Route: 042
     Dates: start: 20220111, end: 20220111
  3. PIRACETAM [Concomitant]
     Active Substance: PIRACETAM
     Indication: Drug therapy
     Route: 042
     Dates: start: 20220111, end: 20220111
  4. SODIUM CHLORIDE [Concomitant]
     Active Substance: SODIUM CHLORIDE
     Indication: Drug therapy
     Route: 042

REACTIONS (5)
  - Cerebral haemorrhage [Recovering/Resolving]
  - Mental disorder [Recovering/Resolving]
  - Dysarthria [Recovering/Resolving]
  - Dysphoria [Recovering/Resolving]
  - Off label use [Unknown]

NARRATIVE: CASE EVENT DATE: 20220111
